FAERS Safety Report 7104990-8 (Version None)
Quarter: 2010Q4

REPORT INFORMATION
  Report Type: 
  Country: None (occurrence: None)
  Receive Date: 20101116
  Receipt Date: 20101109
  Transmission Date: 20110411
  Serious: Yes (Hospitalization)
  Sender: FDA-Public Use
  Company Number: PHHO2005CO12035

PATIENT
  Sex: Female
  Weight: 11.3 kg

DRUGS (1)
  1. ELIDEL [Suspect]
     Indication: DERMATITIS ATOPIC
     Dosage: APPLIED TWICE DAILY
     Route: 061
     Dates: start: 20050219, end: 20050730

REACTIONS (3)
  - ABSCESS LIMB [None]
  - INCISIONAL DRAINAGE [None]
  - PYREXIA [None]
